FAERS Safety Report 13461902 (Version 1)
Quarter: 2017Q2

REPORT INFORMATION
  Report Type: Spontaneous
  Country: US (occurrence: US)
  Receive Date: 20170419
  Receipt Date: 20170419
  Transmission Date: 20170830
  Serious: No
  Sender: FDA-Public Use
  Company Number: None

PATIENT
  Age: 60 Year
  Sex: Female

DRUGS (6)
  1. AFINITOR [Suspect]
     Active Substance: EVEROLIMUS
     Indication: BREAST CANCER
     Route: 048
     Dates: start: 20170405
  2. DIAZEPAM. [Concomitant]
     Active Substance: DIAZEPAM
  3. EXEMESTANE 25MG [Suspect]
     Active Substance: EXEMESTANE
     Route: 048
     Dates: start: 20170405
  4. DEXAMETHASONE. [Concomitant]
     Active Substance: DEXAMETHASONE
  5. GABAPENTIN. [Concomitant]
     Active Substance: GABAPENTIN
  6. METHOCARBAMOL. [Concomitant]
     Active Substance: METHOCARBAMOL

REACTIONS (1)
  - Fatigue [None]

NARRATIVE: CASE EVENT DATE: 20170419
